FAERS Safety Report 5018023-0 (Version None)
Quarter: 2006Q2

REPORT INFORMATION
  Report Type: 
  Country: None (occurrence: None)
  Receive Date: 20060605
  Receipt Date: 20030408
  Transmission Date: 20061013
  Serious: Yes (Death)
  Sender: FDA-Public Use
  Company Number: PHBS2003JP03842

PATIENT
  Age: 52 Year
  Sex: Male

DRUGS (4)
  1. SIMULECT [Suspect]
     Indication: RENAL TRANSPLANT
     Dosage: 20 MG, ONCE/SINGLE
     Route: 042
     Dates: start: 20030220, end: 20030220
  2. TACROLIMUS [Concomitant]
     Dosage: UNK, UNK
     Route: 042
     Dates: start: 20030220
  3. CELLCEPT [Concomitant]
     Dosage: UNK, UNK
     Route: 048
     Dates: start: 20030221
  4. PREDONINE [Concomitant]
     Dosage: UNK, UNK
     Route: 042
     Dates: start: 20030220

REACTIONS (1)
  - ACUTE MYOCARDIAL INFARCTION [None]
